FAERS Safety Report 4944826-4 (Version None)
Quarter: 2006Q1

REPORT INFORMATION
  Report Type: 
  Country: None (occurrence: None)
  Receive Date: 20060315
  Receipt Date: 20050912
  Transmission Date: 20060701
  Serious: Yes (Hospitalization, Disabling)
  Sender: FDA-Public Use
  Company Number: US-MERCK-0509USA01738

PATIENT
  Age: 60 Year
  Sex: Female
  Weight: 86 kg

DRUGS (9)
  1. VIOXX [Suspect]
     Indication: ARTHRALGIA
     Route: 048
     Dates: start: 20000805, end: 20040901
  2. VIOXX [Suspect]
     Route: 048
     Dates: start: 20000805, end: 20040901
  3. TRICOR [Concomitant]
     Route: 065
  4. GLIPIZIDE [Concomitant]
     Route: 065
  5. ACTOS [Concomitant]
     Route: 065
  6. PREMARIN [Concomitant]
     Route: 065
  7. PRILOSEC [Concomitant]
     Route: 048
  8. ZOCOR [Concomitant]
     Route: 048
  9. LEVOXYL [Concomitant]
     Route: 065

REACTIONS (7)
  - ACUTE MYOCARDIAL INFARCTION [None]
  - ARTERIOSCLEROSIS CORONARY ARTERY [None]
  - DYSLIPIDAEMIA [None]
  - GALLBLADDER DISORDER [None]
  - GASTROOESOPHAGEAL REFLUX DISEASE [None]
  - HIP ARTHROPLASTY [None]
  - PALPITATIONS [None]
